FAERS Safety Report 19552730 (Version 1)
Quarter: 2021Q3

REPORT INFORMATION
  Report Type: Spontaneous
  Country: AT (occurrence: AT)
  Receive Date: 20210715
  Receipt Date: 20210715
  Transmission Date: 20211014
  Serious: Yes (Other)
  Sender: FDA-Public Use
  Company Number: AT-TEVA-2021-AT-1932072

PATIENT
  Age: 27 Year
  Sex: Female

DRUGS (1)
  1. NAPROBENE 500 MG ? FILMTABLETTEN [Suspect]
     Active Substance: NAPROXEN
     Dosage: ACCORDING TO SPECIALIST INFORMATION
     Dates: start: 20200201, end: 20200201

REACTIONS (3)
  - Erythema [Unknown]
  - Type IV hypersensitivity reaction [Unknown]
  - Pruritus [Unknown]

NARRATIVE: CASE EVENT DATE: 20200201
